FAERS Safety Report 8614998-9 (Version None)
Quarter: 2012Q3

REPORT INFORMATION
  Report Type: 
  Country: None (occurrence: None)
  Receive Date: 20120823
  Receipt Date: 20120820
  Transmission Date: 20120928
  Serious: Yes (Hospitalization, Other)
  Sender: FDA-Public Use
  Company Number: US-PFIZER INC-2012155395

PATIENT
  Age: 57 Year
  Sex: Female
  Weight: 93.424 kg

DRUGS (9)
  1. SYNTHROID [Concomitant]
     Indication: HYPOTHYROIDISM
     Dosage: 150 UG, 1X/DAY
  2. VITAMIN D [Concomitant]
     Dosage: UNK
  3. BENADRYL [Concomitant]
     Dosage: UNK
  4. VIBRAMYCIN [Suspect]
     Indication: SINUSITIS
     Dosage: UNK, 1X/DAY
     Route: 048
  5. TRAZODONE [Concomitant]
     Indication: DEPRESSION
     Dosage: 100 MG, DAILY
  6. TRAZODONE [Concomitant]
     Indication: BIPOLAR DISORDER
  7. AMBIEN [Concomitant]
     Indication: INSOMNIA
     Dosage: 10 MG, DAILY
  8. DOXYCYCLINE [Suspect]
     Indication: LYME DISEASE
     Dosage: 100 MG, 2X/DAY
     Route: 048
     Dates: start: 20120623, end: 20120627
  9. CELANDINE EXTRACT [Concomitant]
     Dosage: UNK

REACTIONS (7)
  - ABDOMINAL DISCOMFORT [None]
  - FATIGUE [None]
  - ULCER [None]
  - LYME DISEASE [None]
  - VOMITING [None]
  - NASOPHARYNGITIS [None]
  - ASTHENIA [None]
